FAERS Safety Report 8368921-5 (Version None)
Quarter: 2012Q2

REPORT INFORMATION
  Report Type: 
  Country: None (occurrence: None)
  Receive Date: 20120516
  Receipt Date: 20120503
  Transmission Date: 20120825
  Serious: Yes (Hospitalization)
  Sender: FDA-Public Use
  Company Number: 2012AP001329

PATIENT
  Age: 75 Year
  Sex: Male

DRUGS (3)
  1. RAMIPRIL [Suspect]
     Indication: HYPERTENSION
     Dosage: 5 MG;PO;QD
     Route: 048
     Dates: start: 20120329, end: 20120419
  2. LORATADINE [Concomitant]
  3. FEXOFENADINE HCL [Concomitant]

REACTIONS (7)
  - ERYTHEMA [None]
  - SKIN ULCER [None]
  - WOUND SECRETION [None]
  - SKIN EXFOLIATION [None]
  - OEDEMA PERIPHERAL [None]
  - RASH PRURITIC [None]
  - INFLAMMATION [None]
